FAERS Safety Report 18883764 (Version 2)
Quarter: 2021Q1

REPORT INFORMATION
  Report Type: Report from Study
  Country: US (occurrence: US)
  Receive Date: 20210211
  Receipt Date: 20210223
  Transmission Date: 20210420
  Serious: Yes (Death, Hospitalization, Other)
  Sender: FDA-Public Use
  Company Number: US-JNJFOC-20210203054

PATIENT
  Age: 69 Year
  Sex: Female
  Weight: 42.7 kg

DRUGS (3)
  1. MACITENTAN [Suspect]
     Active Substance: MACITENTAN
     Indication: PULMONARY HYPERTENSION
     Route: 048
  2. REMODULIN [Concomitant]
     Active Substance: TREPROSTINIL
  3. SILDENAFIL CITRATE. [Concomitant]
     Active Substance: SILDENAFIL CITRATE

REACTIONS (2)
  - Shock [Unknown]
  - Death [Fatal]

NARRATIVE: CASE EVENT DATE: 20210122
